FAERS Safety Report 16158695 (Version 2)
Quarter: 2019Q2

REPORT INFORMATION
  Report Type: Spontaneous
  Country: BR (occurrence: BR)
  Receive Date: 20190404
  Receipt Date: 20190502
  Transmission Date: 20190711
  Serious: Yes (Hospitalization, Other)
  Sender: FDA-Public Use
  Company Number: BR-PFIZER INC-2019142536

PATIENT
  Age: 77 Year
  Sex: Female
  Weight: 68 kg

DRUGS (25)
  1. FAULDVINCRI [Suspect]
     Active Substance: VINCRISTINE SULFATE
     Indication: NON-HODGKIN^S LYMPHOMA
     Dosage: 1 MG, SINGLE
     Route: 042
     Dates: start: 20190307, end: 20190307
  2. CANDESARTAN. [Concomitant]
     Active Substance: CANDESARTAN
     Dosage: 16 MG, 2X/DAY
     Route: 048
     Dates: start: 20190226, end: 20190315
  3. DECADRON [Suspect]
     Active Substance: DEXAMETHASONE
     Indication: NON-HODGKIN^S LYMPHOMA
     Dosage: 40 MG 1X/DAY
     Route: 042
     Dates: start: 20190304, end: 20190305
  4. CHLORTHALIDONE. [Concomitant]
     Active Substance: CHLORTHALIDONE
     Dosage: 25 MG, 1X/DAY
     Route: 048
     Dates: start: 20190227, end: 20190303
  5. LINAGLIPTIN [Concomitant]
     Active Substance: LINAGLIPTIN
     Dosage: 5 MG, 1X/DAY
     Route: 048
     Dates: start: 20190302, end: 20190315
  6. GENUXAL [Suspect]
     Active Substance: CYCLOPHOSPHAMIDE
     Indication: NON-HODGKIN^S LYMPHOMA
     Dosage: 520MG EVERY 12 HOURS
     Route: 042
     Dates: end: 20190307
  7. FAULDOXO [Suspect]
     Active Substance: DOXORUBICIN HYDROCHLORIDE
     Dosage: 86.5 MG, SINGLE
     Route: 042
     Dates: start: 20190307, end: 20190307
  8. MABTHERA [Suspect]
     Active Substance: RITUXIMAB
     Indication: NON-HODGKIN^S LYMPHOMA
     Dosage: 650 MG, SINGLE
     Route: 042
     Dates: start: 20190303, end: 20190303
  9. CEFAZOLIN [Concomitant]
     Active Substance: CEFAZOLIN
     Dosage: 1 G, 3X/DAY
     Route: 042
     Dates: start: 20190303, end: 20190307
  10. METFORMIN [Concomitant]
     Active Substance: METFORMIN HYDROCHLORIDE
     Dosage: 500 MG, 2X/DAY
     Route: 048
     Dates: start: 20190302, end: 20190315
  11. METHYLPREDNISOLONE. [Concomitant]
     Active Substance: METHYLPREDNISOLONE
     Dosage: 70 MG, SINGLE
     Route: 042
     Dates: start: 20190303, end: 20190303
  12. SCOPOLAMINE [HYOSCINE] [Concomitant]
     Active Substance: SCOPOLAMINE
     Dosage: 20 MG, 4X/DAY
     Route: 042
     Dates: end: 20190305
  13. GENUXAL [Suspect]
     Active Substance: CYCLOPHOSPHAMIDE
     Dosage: 520MG EVERY 12 HOURS
     Route: 042
     Dates: end: 20190307
  14. CEFAZOLIN [Concomitant]
     Active Substance: CEFAZOLIN
     Dosage: 2 G, SINGLE
     Route: 042
     Dates: start: 20190303, end: 20190303
  15. FLUCONAZOLE. [Concomitant]
     Active Substance: FLUCONAZOLE
     Dosage: 150 MG, 1X/DAY
     Route: 048
     Dates: start: 20190302, end: 20190306
  16. FAULDOXO [Suspect]
     Active Substance: DOXORUBICIN HYDROCHLORIDE
     Indication: NON-HODGKIN^S LYMPHOMA
     Dosage: 86.5 MG, SINGLE
     Route: 042
     Dates: start: 20190307, end: 20190307
  17. ALLOPURINOL. [Concomitant]
     Active Substance: ALLOPURINOL
     Dosage: 300 MG, 1X/DAY
     Route: 048
     Dates: start: 20190227, end: 20190321
  18. DIPYRONE [Concomitant]
     Active Substance: DIPYRONE
     Dosage: 2000 MG, 4X/DAY
     Route: 042
     Dates: start: 20190226, end: 20190305
  19. PANTOPRAZOLE [Concomitant]
     Active Substance: PANTOPRAZOLE
     Dosage: 40 MG, 2X/DAY
     Route: 042
     Dates: start: 20190303, end: 20190325
  20. FAULDMETRO [Suspect]
     Active Substance: METHOTREXATE SODIUM
     Indication: NON-HODGKIN^S LYMPHOMA
     Dosage: 12 MG, SINGLE
     Route: 037
     Dates: start: 20190303, end: 20190303
  21. MABTHERA [Suspect]
     Active Substance: RITUXIMAB
     Dosage: 650 MG, SINGLE
     Route: 042
     Dates: start: 20190303, end: 20190303
  22. HYDROCORTISONE. [Concomitant]
     Active Substance: HYDROCORTISONE
     Dosage: 100 MG, SINGLE
     Route: 042
     Dates: start: 20190303, end: 20190303
  23. ATORVASTATIN [Concomitant]
     Active Substance: ATORVASTATIN
     Dosage: 20 MG, 1X/DAY
     Route: 048
     Dates: start: 20190226, end: 20190414
  24. DIPHENHYDRAMINE. [Concomitant]
     Active Substance: DIPHENHYDRAMINE
     Dosage: 50 MG, SINGLE
     Route: 042
     Dates: start: 20190303, end: 20190303
  25. LEVAMLODIPINE [Concomitant]
     Active Substance: LEVAMLODIPINE
     Dosage: 5 MG, 1X/DAY
     Route: 048
     Dates: start: 20190127, end: 20190315

REACTIONS (8)
  - Stomatitis [Recovered/Resolved]
  - Clostridium difficile colitis [Recovered/Resolved]
  - Pseudomonas infection [Recovered/Resolved]
  - Abdominal pain [Not Recovered/Not Resolved]
  - Toxicity to various agents [Not Recovered/Not Resolved]
  - Diarrhoea [Unknown]
  - Bone marrow failure [Recovered/Resolved]
  - Gastrointestinal inflammation [Unknown]

NARRATIVE: CASE EVENT DATE: 201903
